FAERS Safety Report 9165750 (Version 1)
Quarter: 2013Q1

REPORT INFORMATION
  Report Type: Spontaneous
  Country: GB (occurrence: GB)
  Receive Date: 20130315
  Receipt Date: 20130315
  Transmission Date: 20140127
  Serious: Yes (Other)
  Sender: FDA-Public Use
  Company Number: PHHY2013GB024720

PATIENT
  Age: 57 Year
  Sex: Male

DRUGS (5)
  1. CLOMIPRAMINE [Suspect]
     Dosage: 150 MG NOCTE
  2. CLOMIPRAMINE [Suspect]
     Dosage: 50 MG NOCTE
  3. PRIADEL [Suspect]
     Dosage: 800 MG NOCTE
  4. QUETIAPINE [Concomitant]
     Dosage: 500 MG NOCTE
  5. QUETIAPINE [Concomitant]
     Dosage: 300 MG NOCTE

REACTIONS (5)
  - Dyspraxia [Recovering/Resolving]
  - Delirium [Recovering/Resolving]
  - Memory impairment [Recovering/Resolving]
  - Disorientation [Recovering/Resolving]
  - Hallucination, visual [Recovering/Resolving]
